FAERS Safety Report 9186876 (Version 1)
Quarter: 2013Q1

REPORT INFORMATION
  Report Type: Report from Study
  Country: US (occurrence: US)
  Receive Date: 20130325
  Receipt Date: 20130325
  Transmission Date: 20140127
  Serious: Yes (Hospitalization)
  Sender: FDA-Public Use
  Company Number: US-GLAXOSMITHKLINE-A0998037B

PATIENT
  Age: 76 Year
  Sex: Male
  Weight: 85.8 kg

DRUGS (2)
  1. PAZOPANIB [Suspect]
     Indication: SARCOMA
     Dosage: 600MG PER DAY
     Route: 048
     Dates: start: 20120926
  2. GEMCITABINE [Suspect]
     Indication: SARCOMA
     Dosage: 2100MG CYCLIC
     Route: 042
     Dates: start: 20120926

REACTIONS (2)
  - Acute coronary syndrome [Unknown]
  - Hypoglycaemia [Unknown]
